FAERS Safety Report 6878461-8 (Version None)
Quarter: 2010Q2

REPORT INFORMATION
  Report Type: 
  Country: None (occurrence: None)
  Receive Date: 20100624
  Receipt Date: 20100513
  Transmission Date: 20101027
  Serious: No
  Sender: FDA-Public Use
  Company Number: DKLU1062323

PATIENT
  Age: 2 Year
  Sex: Male
  Weight: 16.33 kg

DRUGS (3)
  1. SABRIL [Suspect]
     Indication: COMPLEX PARTIAL SEIZURES
     Dosage: 500 MG MILLIGRAM(S), 2 IN1 D, OTHER
     Dates: start: 20100501
  2. TOPAMAX [Concomitant]
  3. KEPPRA [Concomitant]

REACTIONS (3)
  - COUGH [None]
  - NASOPHARYNGITIS [None]
  - PYREXIA [None]
